FAERS Safety Report 19787110 (Version 1)
Quarter: 2021Q3

REPORT INFORMATION
  Report Type: Spontaneous
  Country: IE (occurrence: IE)
  Receive Date: 20210903
  Receipt Date: 20210903
  Transmission Date: 20211014
  Serious: Yes (Other)
  Sender: FDA-Public Use
  Company Number: IE-MYLANLABS-2021M1057665

PATIENT
  Age: 2 Week
  Weight: 2.38 kg

DRUGS (6)
  1. OMEPRAZOLE. [Suspect]
     Active Substance: OMEPRAZOLE
     Indication: HYPEREMESIS GRAVIDARUM
     Dosage: UNK, FOR THE DURATION OF PREGNANCY.
     Route: 064
  2. OVREENA [Concomitant]
     Dosage: (DATES OF THERAPY UNSPECIFIED)
     Route: 064
  3. SALBUTAMOL                         /00139502/ [Concomitant]
     Active Substance: ALBUTEROL SULFATE
     Dosage: 100 MICROGRAM (DATES OF THERAPY UNSPECIFIED)
     Route: 064
  4. ESOMEPRAZOLE. [Suspect]
     Active Substance: ESOMEPRAZOLE MAGNESIUM
     Indication: HYPEREMESIS GRAVIDARUM
     Dosage: UNK, FOR THE DURATION OF PREGNANCY.
     Route: 064
  5. STEMETIL                           /00013301/ [Suspect]
     Active Substance: PROCHLORPERAZINE
     Dosage: 5 MILLIGRAM, TREATMENT COMMENCED AT APPROX. 9 WEEKS GESTATION.
     Route: 064
     Dates: start: 20200428
  6. CYCLIZINE [Suspect]
     Active Substance: CYCLIZINE
     Indication: HYPEREMESIS GRAVIDARUM
     Dosage: FOR THE DURATION OF PREGNANCY.
     Route: 064

REACTIONS (2)
  - Low birth weight baby [Not Recovered/Not Resolved]
  - Foetal exposure during pregnancy [Not Recovered/Not Resolved]
